FAERS Safety Report 6945672-2 (Version None)
Quarter: 2010Q3

REPORT INFORMATION
  Report Type: 
  Country: None (occurrence: None)
  Receive Date: 20100827
  Receipt Date: 20100819
  Transmission Date: 20110219
  Serious: Yes (Other)
  Sender: FDA-Public Use
  Company Number: GXKR2010DK09307

PATIENT
  Age: 52 Year
  Sex: Female

DRUGS (8)
  1. PACLITAXEL [Suspect]
     Indication: OVARIAN CANCER
     Dosage: 305 MG (175 MG/M^2), QW3
     Route: 042
  2. PACLITAXEL [Suspect]
     Dosage: REDUCED WITH 25%
     Route: 042
  3. CARBOPLATIN [Concomitant]
     Indication: OVARIAN CANCER
     Dosage: 525 MG, UNK
     Route: 042
  4. FENTANYL CITRATE [Concomitant]
     Indication: ANAESTHESIA
  5. THIOPENTAL SODIUM [Concomitant]
     Indication: ANAESTHESIA
  6. ROCURONIUM BROMIDE [Concomitant]
     Indication: ANAESTHESIA
  7. PROPOFOL [Concomitant]
     Indication: ANAESTHESIA
  8. ALFENTANIL [Concomitant]

REACTIONS (9)
  - ARTHRALGIA [None]
  - DYSPNOEA [None]
  - FIBROSIS [None]
  - MICROSTOMIA [None]
  - MOTOR DYSFUNCTION [None]
  - OEDEMA [None]
  - PARAESTHESIA [None]
  - RAYNAUD'S PHENOMENON [None]
  - SCLERODERMA [None]
